FAERS Safety Report 8381815-4 (Version None)
Quarter: 2012Q2

REPORT INFORMATION
  Report Type: 
  Country: None (occurrence: None)
  Receive Date: 20120522
  Receipt Date: 20120522
  Transmission Date: 20120825
  Serious: Yes (Other)
  Sender: FDA-Public Use
  Company Number: None

PATIENT
  Age: 32 Year
  Sex: Male
  Weight: 63.5036 kg

DRUGS (1)
  1. VICODIN [Suspect]
     Dosage: 2 TABLETS ONCE PO
     Route: 048

REACTIONS (4)
  - NAUSEA [None]
  - VOMITING [None]
  - IMPAIRED WORK ABILITY [None]
  - ACTIVITIES OF DAILY LIVING IMPAIRED [None]
